FAERS Safety Report 6280314-3 (Version None)
Quarter: 2009Q3

REPORT INFORMATION
  Report Type: 
  Country: None (occurrence: None)
  Receive Date: 20090724
  Receipt Date: 20070822
  Transmission Date: 20100115
  Serious: Yes (Hospitalization, Other)
  Sender: FDA-Public Use
  Company Number: US-ASTRAZENECA-2006UW07941

PATIENT
  Age: 37 Year
  Sex: Male
  Weight: 106.1 kg

DRUGS (25)
  1. SEROQUEL [Suspect]
     Indication: ANXIETY
     Route: 048
     Dates: start: 20010110, end: 20050401
  2. SEROQUEL [Suspect]
     Indication: SLEEP DISORDER
     Route: 048
     Dates: start: 20010110, end: 20050401
  3. SEROQUEL [Suspect]
     Indication: MENTAL DISORDER
     Route: 048
     Dates: start: 20010110, end: 20050401
  4. SEROQUEL [Suspect]
     Indication: CONVULSION
     Route: 048
     Dates: start: 20010110, end: 20050401
  5. SEROQUEL [Suspect]
     Dosage: 25MG - 75MG TWO TIMES A DAY
     Route: 048
     Dates: start: 20010129, end: 20050730
  6. SEROQUEL [Suspect]
     Dosage: 25MG - 75MG TWO TIMES A DAY
     Route: 048
     Dates: start: 20010129, end: 20050730
  7. SEROQUEL [Suspect]
     Dosage: 25MG - 75MG TWO TIMES A DAY
     Route: 048
     Dates: start: 20010129, end: 20050730
  8. SEROQUEL [Suspect]
     Dosage: 25MG - 75MG TWO TIMES A DAY
     Route: 048
     Dates: start: 20010129, end: 20050730
  9. AVANDIA [Concomitant]
     Indication: DIABETES MELLITUS
     Dosage: 2MG - 4MG EVERY DAY
     Route: 048
     Dates: start: 20020221
  10. METFORMIN HCL [Concomitant]
     Indication: DIABETES MELLITUS
     Route: 048
     Dates: start: 20020528
  11. NEURONTIN [Concomitant]
     Indication: ANXIETY
     Dosage: 600 MG AND 800 MG THREE TIMES A DAY
     Route: 048
     Dates: start: 20010129
  12. NEURONTIN [Concomitant]
     Indication: CONVULSION
     Dosage: 600 MG AND 800 MG THREE TIMES A DAY
     Route: 048
     Dates: start: 20010129
  13. NEURONTIN [Concomitant]
     Indication: NEUROPATHY PERIPHERAL
     Dosage: 600 MG AND 800 MG THREE TIMES A DAY
     Route: 048
     Dates: start: 20010129
  14. LIPITOR [Concomitant]
     Indication: HYPERLIPIDAEMIA
     Dosage: 10MG - 40MG EVERY DAY
     Route: 048
     Dates: start: 20021227
  15. TRICOR [Concomitant]
     Indication: HYPERLIPIDAEMIA
     Dosage: 145MG - 160MG EVERY DAY
     Route: 048
     Dates: start: 20020528
  16. ACCUPRIL [Concomitant]
     Indication: HYPERTENSION
     Route: 048
     Dates: start: 20010227
  17. PROPRANOLOL [Concomitant]
     Indication: HYPERTENSION
     Route: 048
     Dates: start: 20010227
  18. CELEXA [Concomitant]
     Indication: ANXIETY
     Dosage: 20MG - 30MG EVERYDAY
     Route: 048
     Dates: start: 20010227
  19. CELEXA [Concomitant]
     Indication: EMOTIONAL DISORDER
     Dosage: 20MG - 30MG EVERYDAY
     Route: 048
     Dates: start: 20010227
  20. KLONOPIN [Concomitant]
     Indication: EMOTIONAL DISORDER
     Route: 048
     Dates: start: 20040405
  21. KLONOPIN [Concomitant]
     Indication: CONVULSION
     Route: 048
     Dates: start: 20040405
  22. GABITRIL [Concomitant]
     Indication: MENTAL DISORDER
     Route: 048
     Dates: start: 20020528
  23. GABITRIL [Concomitant]
     Indication: ANXIETY DISORDER
     Route: 048
     Dates: start: 20020528
  24. LISINOPRIL [Concomitant]
     Indication: HYPERTENSION
     Route: 048
     Dates: start: 20070123
  25. CARDIZEM [Concomitant]
     Indication: HYPERTENSION
     Dosage: 240MG - 480MG EVERYDAY
     Route: 048
     Dates: start: 20040405

REACTIONS (5)
  - BLINDNESS [None]
  - BLOOD CHOLESTEROL INCREASED [None]
  - BLOOD TRIGLYCERIDES INCREASED [None]
  - DIABETES MELLITUS [None]
  - TYPE 2 DIABETES MELLITUS [None]
